FAERS Safety Report 7641136-1 (Version None)
Quarter: 2011Q3

REPORT INFORMATION
  Report Type: 
  Country: None (occurrence: None)
  Receive Date: 20110728
  Receipt Date: 20110718
  Transmission Date: 20111222
  Serious: Yes (Other)
  Sender: FDA-Public Use
  Company Number: US-JNJFOC-20110708624

PATIENT
  Sex: Male

DRUGS (1)
  1. NEOSPORIN [Suspect]
     Indication: LACERATION
     Route: 047

REACTIONS (2)
  - ACCIDENTAL EXPOSURE [None]
  - CELLULITIS [None]
